FAERS Safety Report 7454466-3 (Version None)
Quarter: 2011Q2

REPORT INFORMATION
  Report Type: 
  Country: None (occurrence: None)
  Receive Date: 20110425
  Receipt Date: 20110413
  Transmission Date: 20111010
  Serious: Yes (Hospitalization)
  Sender: FDA-Public Use
  Company Number: 2009AC000373

PATIENT
  Age: 67 Year
  Sex: Female

DRUGS (35)
  1. DICLOFENAC SODIUM [Concomitant]
  2. PROPAFENONE HCL [Concomitant]
  3. AVAPRO [Concomitant]
  4. FOSAMAX [Concomitant]
  5. LOVASTATIN [Concomitant]
  6. ASPIRIN [Concomitant]
  7. RYTHMOL [Concomitant]
  8. VIT. C [Concomitant]
  9. ZOFRAN [Concomitant]
  10. DICYCLOMINE [Concomitant]
  11. NIFEDIAC CC [Concomitant]
  12. HEPARIN [Concomitant]
  13. EXFORGE [Concomitant]
  14. NOVOLOG [Concomitant]
  15. NEXIUM [Concomitant]
  16. OMEPRAZOLE [Concomitant]
  17. PROTONIX [Concomitant]
  18. SIMVASTATIN [Concomitant]
  19. TRAMADOL HYDROCHLORIDE [Concomitant]
  20. VITAMIN K TAB [Concomitant]
  21. METAMUCIL-2 [Concomitant]
  22. ZETIA [Concomitant]
  23. FERROUS SULFATE TAB [Concomitant]
  24. MULTI-VITAMIN [Concomitant]
  25. COUMADIN [Concomitant]
  26. AMOXICILLIN [Concomitant]
  27. DIGOXIN [Suspect]
     Indication: ATRIAL FIBRILLATION
     Dosage: 0.125 MG;QD;PO
     Route: 048
     Dates: start: 20011101, end: 20080105
  28. TRIAMTERENE AND HYDROCHLOROTHIAZIDE [Concomitant]
  29. METOPROLOL TARTRATE [Concomitant]
  30. HYDROCHLOROTHIAZIDE [Concomitant]
  31. DIOVAN [Concomitant]
  32. LASIX [Concomitant]
  33. PROCARDIA XL [Concomitant]
  34. FERROUS GLUCONATE [Concomitant]
  35. MAGNESIUM [Concomitant]

REACTIONS (90)
  - FAECES DISCOLOURED [None]
  - HIATUS HERNIA [None]
  - BLOOD MAGNESIUM DECREASED [None]
  - BLOOD TRIGLYCERIDES INCREASED [None]
  - RENAL FAILURE CHRONIC [None]
  - BLOOD PRESSURE INADEQUATELY CONTROLLED [None]
  - FATIGUE [None]
  - AORTIC ARTERIOSCLEROSIS [None]
  - CORONARY ARTERY DISEASE [None]
  - TOXICITY TO VARIOUS AGENTS [None]
  - HYPONATRAEMIA [None]
  - LUNG INFILTRATION [None]
  - FRACTURED SACRUM [None]
  - BALANCE DISORDER [None]
  - KNEE ARTHROPLASTY [None]
  - MULTIPLE INJURIES [None]
  - ATRIAL FIBRILLATION [None]
  - CAROTID ARTERY STENOSIS [None]
  - OESOPHAGITIS [None]
  - MITRAL VALVE STENOSIS [None]
  - VISION BLURRED [None]
  - CARDIAC FAILURE CONGESTIVE [None]
  - ATRIAL TACHYCARDIA [None]
  - INAPPROPRIATE SCHEDULE OF DRUG ADMINISTRATION [None]
  - MALAISE [None]
  - FALL [None]
  - TRAUMATIC HAEMATOMA [None]
  - ATRIOVENTRICULAR BLOCK FIRST DEGREE [None]
  - MUSCULOSKELETAL CHEST PAIN [None]
  - CAROTID ARTERY OCCLUSION [None]
  - OEDEMA PERIPHERAL [None]
  - BLOOD SODIUM DECREASED [None]
  - MITRAL VALVE CALCIFICATION [None]
  - AORTIC VALVE CALCIFICATION [None]
  - MUSCULOSKELETAL PAIN [None]
  - ELECTROCARDIOGRAM ST-T CHANGE [None]
  - LEFT VENTRICULAR DYSFUNCTION [None]
  - DEHYDRATION [None]
  - ABDOMINAL PAIN UPPER [None]
  - GAIT DISTURBANCE [None]
  - PULMONARY CONGESTION [None]
  - HYPOAESTHESIA [None]
  - OBESITY [None]
  - DILATATION ATRIAL [None]
  - ASTHENIA [None]
  - INFLUENZA [None]
  - LIPOMA [None]
  - RENAL ARTERY STENOSIS [None]
  - ANAEMIA [None]
  - NAUSEA [None]
  - VOMITING [None]
  - GASTROENTERITIS [None]
  - ECONOMIC PROBLEM [None]
  - PALPITATIONS [None]
  - GASTROINTESTINAL HAEMORRHAGE [None]
  - GASTRIC ULCER [None]
  - BACK PAIN [None]
  - AORTIC CALCIFICATION [None]
  - CARDIAC FLUTTER [None]
  - TINNITUS [None]
  - PELVIC FRACTURE [None]
  - NECK PAIN [None]
  - BUNDLE BRANCH BLOCK LEFT [None]
  - DYSPNOEA EXERTIONAL [None]
  - BLOOD CHOLESTEROL INCREASED [None]
  - LOW DENSITY LIPOPROTEIN INCREASED [None]
  - MYALGIA [None]
  - DIZZINESS [None]
  - PAIN IN EXTREMITY [None]
  - HEADACHE [None]
  - DEAFNESS [None]
  - VERTIGO [None]
  - CEREBRAL ATROPHY [None]
  - SUPRAVENTRICULAR EXTRASYSTOLES [None]
  - URINARY TRACT INFECTION [None]
  - CAROTID ARTERY DISEASE [None]
  - MITRAL VALVE INCOMPETENCE [None]
  - CHEST PAIN [None]
  - BLOOD CHLORIDE DECREASED [None]
  - SINUS BRADYCARDIA [None]
  - PULMONARY OEDEMA [None]
  - TRICUSPID VALVE INCOMPETENCE [None]
  - AORTIC VALVE SCLEROSIS [None]
  - ELECTROCARDIOGRAM ST SEGMENT ABNORMAL [None]
  - MYOCARDIAL ISCHAEMIA [None]
  - ABDOMINAL PAIN [None]
  - CARDIOMEGALY [None]
  - PLEURAL EFFUSION [None]
  - PERONEAL NERVE PALSY [None]
  - NEUROPATHY PERIPHERAL [None]
